FAERS Safety Report 7360650-X (Version None)
Quarter: 2011Q1

REPORT INFORMATION
  Report Type: 
  Country: None (occurrence: None)
  Receive Date: 20110318
  Receipt Date: 20110309
  Transmission Date: 20110831
  Serious: Yes (Congenital Anomaly)
  Sender: FDA-Public Use
  Company Number: DK-PFIZER INC-DK-WYE-G01234508

PATIENT
  Sex: Female

DRUGS (5)
  1. SEROQUEL [Suspect]
     Indication: DEPRESSION
     Dosage: 700 MG, 1X/DAY
     Route: 064
     Dates: start: 20040101, end: 20070710
  2. EFFEXOR [Suspect]
     Indication: DEPRESSION
     Dosage: 300 MG, 1X/DAY
     Route: 064
     Dates: start: 20040101, end: 20070710
  3. SELO-ZOK [Suspect]
     Indication: ARRHYTHMIA
     Dosage: 50 MG, 1X/DAY
     Route: 064
     Dates: start: 20071023
  4. ZOLOFT [Suspect]
     Indication: DEPRESSION
     Dosage: 100 MG, 1X/DAY
     Route: 064
     Dates: start: 20070710, end: 20080205
  5. LAMICTAL [Suspect]
     Indication: DEPRESSION
     Dosage: 150 MG, 1X/DAY
     Dates: start: 20040101, end: 20070710

REACTIONS (3)
  - BRAIN MALFORMATION [None]
  - FOETAL GROWTH RESTRICTION [None]
  - DRUG EXPOSURE DURING PREGNANCY [None]
